FAERS Safety Report 5674502-4 (Version None)
Quarter: 2008Q1

REPORT INFORMATION
  Report Type: 
  Country: None (occurrence: None)
  Receive Date: 20080317
  Receipt Date: 20080229
  Transmission Date: 20080703
  Serious: Yes (Other)
  Sender: FDA-Public Use
  Company Number: 2008EU000476

PATIENT
  Age: 74 Year
  Sex: Female

DRUGS (3)
  1. PROGRAF [Suspect]
     Indication: RENAL TRANSPLANT
     Dosage: D, ORAL
     Route: 048
     Dates: start: 20080201
  2. NEORAL [Suspect]
     Indication: RENAL TRANSPLANT
     Dosage: D, ORAL
     Route: 048
     Dates: end: 20080201
  3. ATORVASTATIN CALCIUM [Suspect]
     Indication: RENAL TRANSPLANT
     Dosage: D, ORAL
     Route: 048

REACTIONS (3)
  - BLOOD CREATINE PHOSPHOKINASE INCREASED [None]
  - MYALGIA [None]
  - MYOGLOBINURIA [None]
